FAERS Safety Report 5903260-0 (Version None)
Quarter: 2008Q3

REPORT INFORMATION
  Report Type: 
  Country: None (occurrence: None)
  Receive Date: 20080926
  Receipt Date: 20080915
  Transmission Date: 20090109
  Serious: No
  Sender: FDA-Public Use
  Company Number: 237750J08USA

PATIENT
  Age: 61 Year
  Sex: Female
  Weight: 81.5 kg

DRUGS (4)
  1. REBIF [Suspect]
     Indication: MULTIPLE SCLEROSIS
     Dosage: 44 MCG, 3 IN 1 WEEKS, SUBCUTANEOUS
     Route: 058
     Dates: start: 20071204
  2. NAPROSYN [Concomitant]
  3. HYDROCODONE(HYDROCODONE) [Concomitant]
  4. BETA BLOCKERS MEDICATION(BETA BLOCKING AGENTS) [Concomitant]

REACTIONS (4)
  - DEPRESSION [None]
  - PARAESTHESIA [None]
  - ROAD TRAFFIC ACCIDENT [None]
  - SPEECH DISORDER [None]
